FAERS Safety Report 5602075-0 (Version None)
Quarter: 2008Q1

REPORT INFORMATION
  Report Type: 
  Country: None (occurrence: None)
  Receive Date: 20080125
  Receipt Date: 20080111
  Transmission Date: 20080703
  Serious: Yes (Other)
  Sender: FDA-Public Use
  Company Number: US-BAYER-200811136NA

PATIENT
  Age: 64 Year
  Sex: Female
  Weight: 41 kg

DRUGS (2)
  1. LEUKINE [Suspect]
     Indication: OVARIAN CANCER METASTATIC
     Dosage: TOTAL DAILY DOSE: 250 ?G
     Route: 058
     Dates: start: 20071228
  2. ABRAXANE [Suspect]
     Indication: OVARIAN CANCER METASTATIC
     Route: 042
     Dates: start: 20071212

REACTIONS (4)
  - BLOOD POTASSIUM DECREASED [None]
  - HEADACHE [None]
  - NAUSEA [None]
  - VOMITING [None]
